FAERS Safety Report 6812601-1 (Version None)
Quarter: 2010Q3

REPORT INFORMATION
  Report Type: 
  Country: None (occurrence: None)
  Receive Date: 20100701
  Receipt Date: 20100622
  Transmission Date: 20110219
  Serious: Yes (Other)
  Sender: FDA-Public Use
  Company Number: US-PFIZER INC-2010078554

PATIENT
  Sex: Male
  Weight: 74.4 kg

DRUGS (8)
  1. NEURONTIN [Suspect]
     Dosage: 150 MG, 2X/DAY
     Route: 048
     Dates: start: 20100101, end: 20100101
  2. LYRICA [Suspect]
     Indication: NEURALGIA
     Dosage: 75 MG, 3X/DAY
     Route: 048
     Dates: start: 20100501, end: 20100622
  3. LYRICA [Suspect]
     Indication: NERVE COMPRESSION
  4. LYRICA [Suspect]
     Indication: SPINAL FUSION SURGERY
  5. ADVAIR DISKUS 100/50 [Concomitant]
     Dosage: UNK
     Dates: start: 20090101
  6. METHOCARBAMOL [Concomitant]
     Indication: MUSCLE RELAXANT THERAPY
     Dosage: UNK
     Dates: start: 20090101
  7. HYDROCODONE [Concomitant]
     Dosage: UNK
     Dates: start: 20090101
  8. MELOXICAM [Concomitant]
     Dosage: UNK
     Dates: start: 20090101

REACTIONS (8)
  - ABDOMINAL DISTENSION [None]
  - ABDOMINAL PAIN UPPER [None]
  - AGGRESSION [None]
  - HALLUCINATION [None]
  - INSOMNIA [None]
  - SPINAL FUSION SURGERY [None]
  - SUICIDAL IDEATION [None]
  - WEIGHT INCREASED [None]
